FAERS Safety Report 7609333-9 (Version None)
Quarter: 2011Q3

REPORT INFORMATION
  Report Type: 
  Country: None (occurrence: None)
  Receive Date: 20110714
  Receipt Date: 20110703
  Transmission Date: 20111222
  Serious: Yes (Other)
  Sender: FDA-Public Use
  Company Number: PHHY2011SE60169

PATIENT
  Age: 61 Year
  Sex: Male

DRUGS (2)
  1. AZATHIOPRINE [Concomitant]
  2. CYCLOSPORINE [Suspect]
     Indication: LUNG TRANSPLANT

REACTIONS (10)
  - MYCOPLASMA INFECTION [None]
  - OBLITERATIVE BRONCHIOLITIS [None]
  - LUNG TRANSPLANT REJECTION [None]
  - C-REACTIVE PROTEIN INCREASED [None]
  - IMMUNOSUPPRESSANT DRUG LEVEL INCREASED [None]
  - BLOOD CREATININE INCREASED [None]
  - RENAL IMPAIRMENT [None]
  - CYTOMEGALOVIRUS INFECTION [None]
  - ASPERGILLOSIS [None]
  - VITAL CAPACITY DECREASED [None]
